FAERS Safety Report 5588753-0 (Version None)
Quarter: 2008Q1

REPORT INFORMATION
  Report Type: 
  Country: None (occurrence: None)
  Receive Date: 20080111
  Receipt Date: 20080103
  Transmission Date: 20080703
  Serious: Yes (Other)
  Sender: FDA-Public Use
  Company Number: B0361352A

PATIENT
  Age: 52 Year
  Sex: Male

DRUGS (3)
  1. PAROXETINE HYDROCHLORIDE [Suspect]
     Route: 065
     Dates: start: 19980925
  2. DIAZEPAM [Concomitant]
     Indication: ANXIETY
     Dates: start: 19950805
  3. AMITRIPTYLINE HCL [Concomitant]
     Dates: start: 20050902

REACTIONS (13)
  - AGGRESSION [None]
  - CONFUSIONAL STATE [None]
  - DIARRHOEA [None]
  - DISTURBANCE IN ATTENTION [None]
  - DIZZINESS [None]
  - DRUG WITHDRAWAL SYNDROME [None]
  - ERECTILE DYSFUNCTION [None]
  - FATIGUE [None]
  - FEELINGS OF WORTHLESSNESS [None]
  - LETHARGY [None]
  - MEMORY IMPAIRMENT [None]
  - SUICIDAL IDEATION [None]
  - VERTIGO [None]
